FAERS Safety Report 6597690-4 (Version None)
Quarter: 2010Q1

REPORT INFORMATION
  Report Type: 
  Country: None (occurrence: None)
  Receive Date: 20100223
  Receipt Date: 20100212
  Transmission Date: 20100710
  Serious: Yes (Other)
  Sender: FDA-Public Use
  Company Number: NL-AMGEN-QUU392312

PATIENT
  Sex: Male
  Weight: 91 kg

DRUGS (5)
  1. NPLATE [Suspect]
     Indication: IDIOPATHIC THROMBOCYTOPENIC PURPURA
     Route: 058
     Dates: start: 20081114, end: 20100105
  2. PREDNISONE [Concomitant]
     Route: 048
     Dates: start: 20090910
  3. CALCICHEW D3 [Concomitant]
     Route: 048
     Dates: start: 20080408
  4. ACTONEL [Concomitant]
     Route: 048
     Dates: start: 20060111
  5. COZAAR [Concomitant]
     Route: 048
     Dates: start: 20080408

REACTIONS (2)
  - BONE MARROW RETICULIN FIBROSIS [None]
  - THERAPEUTIC RESPONSE DECREASED [None]
